FAERS Safety Report 24132702 (Version 1)
Quarter: 2024Q3

REPORT INFORMATION
  Report Type: Report from Study
  Country: US (occurrence: None)
  Receive Date: 20240724
  Receipt Date: 20240724
  Transmission Date: 20241017
  Serious: Yes (Other)
  Sender: ASTRAZENECA
  Company Number: 2020SF34480

PATIENT
  Age: 55 Year
  Sex: Female

DRUGS (1)
  1. LYNPARZA [Suspect]
     Active Substance: OLAPARIB
     Indication: Ovarian cancer
     Dosage: UNKNOWN
     Route: 048

REACTIONS (10)
  - Rheumatoid arthritis [Unknown]
  - Abdominal pain [Unknown]
  - Nausea [Unknown]
  - Epistaxis [Unknown]
  - Musculoskeletal chest pain [Unknown]
  - Sneezing [Unknown]
  - Rhinorrhoea [Unknown]
  - Seasonal allergy [Unknown]
  - Nasal dryness [Unknown]
  - Dysphonia [Unknown]
